FAERS Safety Report 6043102-9 (Version None)
Quarter: 2009Q1

REPORT INFORMATION
  Report Type: 
  Country: None (occurrence: None)
  Receive Date: 20090119
  Receipt Date: 20090114
  Transmission Date: 20090719
  Serious: Yes (Disabling)
  Sender: FDA-Public Use
  Company Number: JP-ABBOTT-08P-087-0434144-00

PATIENT
  Age: 73 Year
  Sex: Male

DRUGS (10)
  1. LEUPROLIDE ACETATE [Suspect]
     Indication: PROSTATE CANCER STAGE IV
     Route: 058
     Dates: start: 20061205, end: 20071113
  2. CHLORMADINONE ACETATE TAB [Concomitant]
     Indication: PROSTATE CANCER STAGE IV
     Route: 048
     Dates: start: 20061114, end: 20070625
  3. CHLORMADINONE ACETATE TAB [Concomitant]
     Dates: start: 20080520, end: 20080526
  4. DIETHYLSTILBESTROL [Concomitant]
     Indication: PROSTATE CANCER STAGE IV
     Route: 048
     Dates: start: 20061208, end: 20061222
  5. DIETHYLSTILBESTROL [Concomitant]
     Route: 042
     Dates: start: 20061128, end: 20061208
  6. CASODEX [Concomitant]
     Indication: PROSTATE CANCER STAGE IV
     Route: 048
     Dates: start: 20070626, end: 20080812
  7. BUP-4 [Concomitant]
     Indication: URINARY INCONTINENCE
     Route: 048
     Dates: start: 20061219, end: 20070305
  8. SPIROPENT [Concomitant]
     Indication: URINARY INCONTINENCE
     Route: 048
     Dates: start: 20070209, end: 20080311
  9. POLLAKISU [Concomitant]
     Indication: URINARY INCONTINENCE
     Route: 048
     Dates: start: 20070306, end: 20080311
  10. ANAFRANIL [Concomitant]
     Indication: DRUG USE FOR UNKNOWN INDICATION
     Route: 048
     Dates: start: 20070918, end: 20080311

REACTIONS (3)
  - BLOOD CREATININE INCREASED [None]
  - BLOOD URIC ACID INCREASED [None]
  - PROSTATIC SPECIFIC ANTIGEN INCREASED [None]
